FAERS Safety Report 7506580-1 (Version None)
Quarter: 2011Q2

REPORT INFORMATION
  Report Type: 
  Country: None (occurrence: None)
  Receive Date: 20110526
  Receipt Date: 20110520
  Transmission Date: 20111010
  Serious: Yes (Other)
  Sender: FDA-Public Use
  Company Number: US-PFIZER INC-2011109998

PATIENT
  Sex: Female

DRUGS (2)
  1. PERCOCET [Suspect]
     Indication: PAIN
     Dosage: UNK
     Route: 048
  2. LYRICA [Suspect]
     Dosage: UNK, 2X/DAY
     Route: 048
     Dates: start: 20110501, end: 20110519

REACTIONS (2)
  - OEDEMA PERIPHERAL [None]
  - PAIN IN EXTREMITY [None]
